FAERS Safety Report 12536752 (Version 1)
Quarter: 2016Q3

REPORT INFORMATION
  Report Type: Spontaneous
  Country: DE (occurrence: DE)
  Receive Date: 20160707
  Receipt Date: 20160707
  Transmission Date: 20161109
  Serious: Yes (Hospitalization)
  Sender: FDA-Public Use
  Company Number: DE-CONCORDIA PHARMACEUTICALS INC.-GSH201606-003093

PATIENT
  Age: 44 Year
  Sex: Female

DRUGS (6)
  1. TRIAMTERENE. [Suspect]
     Active Substance: TRIAMTERENE
     Indication: DIURETIC THERAPY
  2. NIFEDIPINE. [Concomitant]
     Active Substance: NIFEDIPINE
  3. METOPROLOL HYDROCHLOROTHIAZIDE [Suspect]
     Active Substance: HYDROCHLOROTHIAZIDE\METOPROLOL TARTRATE
     Indication: HYPERTENSION
  4. TRIAMTERENE. [Suspect]
     Active Substance: TRIAMTERENE
     Indication: HYPERTENSION
  5. CAPTOPRIL. [Suspect]
     Active Substance: CAPTOPRIL
  6. METOPROLOL HYDROCHLOROTHIAZIDE [Suspect]
     Active Substance: HYDROCHLOROTHIAZIDE\METOPROLOL TARTRATE
     Indication: DIURETIC THERAPY

REACTIONS (4)
  - Hyponatraemia [Recovered/Resolved]
  - Inappropriate antidiuretic hormone secretion [Recovered/Resolved]
  - Psychotic disorder [Recovered/Resolved]
  - Hypokalaemia [Recovered/Resolved]
